FAERS Safety Report 5924906-7 (Version None)
Quarter: 2008Q4

REPORT INFORMATION
  Report Type: 
  Country: None (occurrence: None)
  Receive Date: 20081017
  Receipt Date: 20081017
  Transmission Date: 20090506
  Serious: Yes (Other)
  Sender: FDA-Public Use
  Company Number: None

PATIENT
  Age: 56 Year
  Sex: Female
  Weight: 48.9885 kg

DRUGS (5)
  1. CIMETIDINE [Suspect]
     Indication: NAUSEA
     Dosage: 300 MG ONCE IV
     Route: 042
     Dates: start: 20081010, end: 20081010
  2. DEXAMETHASONE [Concomitant]
  3. DIPHENHYDRAMINE HCL [Concomitant]
  4. LORAZEPAM [Concomitant]
  5. PACLITAXEL [Concomitant]

REACTIONS (4)
  - ERYTHEMA [None]
  - INFUSION RELATED REACTION [None]
  - RASH [None]
  - VASCULITIS [None]
